FAERS Safety Report 5079335-8 (Version None)
Quarter: 2006Q3

REPORT INFORMATION
  Report Type: 
  Country: None (occurrence: None)
  Receive Date: 20060814
  Receipt Date: 20060803
  Transmission Date: 20061208
  Serious: Yes (Other)
  Sender: FDA-Public Use
  Company Number: PHEH2006US10062

PATIENT
  Age: 87 Year
  Sex: Female

DRUGS (5)
  1. ALBUTEROL [Concomitant]
  2. IPRATROPIUM BROMIDE [Concomitant]
  3. QVAR 40 [Concomitant]
  4. XANAX [Concomitant]
  5. FORADIL [Suspect]
     Indication: ASTHMA
     Dates: start: 20060621

REACTIONS (6)
  - CARDIAC OUTPUT DECREASED [None]
  - CHEST PAIN [None]
  - COMPUTERISED TOMOGRAM [None]
  - DEMENTIA ALZHEIMER'S TYPE [None]
  - DYSPNOEA [None]
  - MEMORY IMPAIRMENT [None]
